FAERS Safety Report 7032304-0 (Version None)
Quarter: 2010Q4

REPORT INFORMATION
  Report Type: 
  Country: None (occurrence: None)
  Receive Date: 20101007
  Receipt Date: 20100524
  Transmission Date: 20110411
  Serious: Yes (Hospitalization)
  Sender: FDA-Public Use
  Company Number: DE-BRISTOL-MYERS SQUIBB COMPANY-15124878

PATIENT
  Age: 67 Year
  Sex: Male
  Weight: 87 kg

DRUGS (4)
  1. CETUXIMAB [Suspect]
     Indication: HEAD AND NECK CANCER
     Dosage: FIRST INF:26APR10 RECENT INF:17MAY10 INTERRUPTED ON 24MAY10,21D RESTARTED ON 25MAY10
     Route: 042
     Dates: start: 20100426
  2. CISPLATIN [Suspect]
     Indication: HEAD AND NECK CANCER
     Dosage: FIRST INF:26APR10 RECENT INF(2ND):17MAY10
     Route: 042
     Dates: start: 20100426
  3. CILENGITIDE [Suspect]
     Indication: HEAD AND NECK CANCER
     Dosage: RECENT INF:20MAY10 INF 10,24D INTERRUPTED ON 24MAY10 RESTARTED ON 25MAY10
     Route: 042
     Dates: start: 20100426
  4. FLUOROURACIL [Suspect]
     Indication: HEAD AND NECK CANCER
     Dosage: 1DF=CONTINUOUS INF FROM DAY1-DAY4(1000MG/M2)
     Route: 042
     Dates: start: 20100426

REACTIONS (1)
  - THROMBOSIS [None]
